FAERS Safety Report 6068717-3 (Version None)
Quarter: 2009Q1

REPORT INFORMATION
  Report Type: 
  Country: None (occurrence: None)
  Receive Date: 20090206
  Receipt Date: 20090204
  Transmission Date: 20090719
  Serious: Yes (Other)
  Sender: FDA-Public Use
  Company Number: B0557435A

PATIENT
  Age: 70 Year
  Sex: Female

DRUGS (4)
  1. RELENZA [Suspect]
     Indication: INFLUENZA
     Dosage: 10MG TWICE PER DAY
     Route: 055
     Dates: start: 20090129, end: 20090131
  2. SINGULAIR [Suspect]
     Indication: ASTHMA
     Dosage: 10MG PER DAY
     Route: 048
  3. ALVESCO [Concomitant]
     Indication: ASTHMA
     Route: 055
  4. TULOBUTEROL [Concomitant]
     Indication: ASTHMA
     Dosage: 2MG PER DAY
     Route: 062

REACTIONS (2)
  - HALLUCINATION [None]
  - SOMNOLENCE [None]
